FAERS Safety Report 9994894 (Version 1)
Quarter: 2014Q1

REPORT INFORMATION
  Report Type: Spontaneous
  Country: US (occurrence: None)
  Receive Date: 20140225
  Receipt Date: 20140225
  Transmission Date: 20141002
  Serious: Yes (Other)
  Sender: FDA-Public Use
  Company Number: 2013-339

PATIENT
  Age: 75 Year
  Sex: Male
  Weight: 91.6 kg

DRUGS (13)
  1. PRIALT [Suspect]
     Indication: SPINAL CORD INJURY CERVICAL
     Route: 037
     Dates: start: 201306
  2. PRIALT [Suspect]
     Indication: PAIN
     Route: 037
     Dates: start: 201306
  3. PRIALT [Suspect]
     Indication: NEURALGIA
     Route: 037
     Dates: start: 201306
  4. BACLOFEN (BACLOFEN) INJECTION [Suspect]
     Indication: SPINAL CORD INJURY CERVICAL
  5. BACLOFEN (BACLOFEN) INJECTION [Suspect]
     Indication: PAIN
  6. BACLOFEN (BACLOFEN) INJECTION [Suspect]
     Indication: NEURALGIA
  7. MORPHINE SULFATE (MORPHINE SULFATE) INJECTION [Suspect]
     Indication: SPINAL CORD INJURY CERVICAL
  8. MORPHINE SULFATE (MORPHINE SULFATE) INJECTION [Suspect]
     Indication: PAIN
  9. MORPHINE SULFATE (MORPHINE SULFATE) INJECTION [Suspect]
     Indication: NEURALGIA
  10. FLORINEF [Concomitant]
  11. SAVELLA (MILNACIPRAN HYDROCHLORIDE) [Concomitant]
  12. KLONOPIN (CLONAZEPAM) [Concomitant]
  13. LYRICA (PREGABALIN) [Concomitant]

REACTIONS (4)
  - Hypotension [None]
  - Urinary retention [None]
  - Condition aggravated [None]
  - Constipation [None]
